FAERS Safety Report 8030445-2 (Version None)
Quarter: 2012Q1

REPORT INFORMATION
  Report Type: 
  Country: None (occurrence: None)
  Receive Date: 20120109
  Receipt Date: 20120106
  Transmission Date: 20120608
  Serious: Yes (Death)
  Sender: FDA-Public Use
  Company Number: PHHY2012NL001165

PATIENT
  Sex: Male

DRUGS (3)
  1. ZOMETA [Suspect]
     Dosage: 4 MG, PER 5 ML ONCE PER 4 WEEKS
     Dates: start: 20111214
  2. ZOMETA [Suspect]
     Indication: BONE NEOPLASM MALIGNANT
     Dosage: 4 MG PER 5 ML ONCE PER 4 WEEKS
     Dates: start: 20111019
  3. ZOMETA [Suspect]
     Dosage: 4 MG, PER 5 ML ONCE PER 4 WEEKS
     Dates: start: 20111115

REACTIONS (1)
  - DEATH [None]
